FAERS Safety Report 10209602 (Version 4)
Quarter: 2014Q3

REPORT INFORMATION
  Report Type: Spontaneous
  Country: US (occurrence: US)
  Receive Date: 20140602
  Receipt Date: 20140804
  Transmission Date: 20150326
  Serious: Yes (Life-Threatening, Hospitalization, Disabling)
  Sender: FDA-Public Use
  Company Number: US-MERCK-1405USA013334

PATIENT
  Age: 55 Year
  Sex: Female
  Weight: 88.89 kg

DRUGS (12)
  1. ZOLINZA [Suspect]
     Active Substance: VORINOSTAT
     Indication: OVARIAN CANCER
     Dosage: 300 MG ONCE DAILY WITH FOOD AS DIRECTED
     Route: 048
     Dates: start: 20140508, end: 20140511
  2. ZOLINZA [Suspect]
     Active Substance: VORINOSTAT
     Indication: NEOPLASM MALIGNANT
     Dosage: 300 MG ONCE DAILY WITH FOOD AS DIRECTED
     Route: 048
     Dates: start: 20140520, end: 20140527
  3. VOTRIENT [Suspect]
     Active Substance: PAZOPANIB HYDROCHLORIDE
     Indication: OVARIAN CANCER
     Dosage: 200 MG, QD
     Route: 048
     Dates: start: 20140508, end: 20140625
  4. VOTRIENT [Suspect]
     Active Substance: PAZOPANIB HYDROCHLORIDE
     Dosage: 400 MG, QD
     Route: 048
     Dates: start: 20140617, end: 20140625
  5. VITAMIN B COMPLEX [Concomitant]
     Active Substance: CYANOCOBALAMIN\DEXPANTHENOL\NIACINAMIDE\PYRIDOXINE HYDROCHLORIDE\RIBOFLAVIN 5^-PHOSPHATE SODIUM\THIAMINE HYDROCHLORIDE\VITAMIN B COMPLEX
     Dosage: UNK
  6. ADVAIR HFA [Concomitant]
     Active Substance: FLUTICASONE PROPIONATE\SALMETEROL XINAFOATE
     Dosage: UNK
  7. FLONASE [Concomitant]
     Active Substance: FLUTICASONE PROPIONATE
     Dosage: UNK
  8. ZOLINZA [Suspect]
     Active Substance: VORINOSTAT
     Dosage: 300 MG ONCE DAILY WITH FOOD AS DIRECTED
     Route: 048
     Dates: start: 20140603, end: 20140610
  9. ZOLINZA [Suspect]
     Active Substance: VORINOSTAT
     Dosage: 200 MG, QD
     Route: 048
     Dates: start: 20140714
  10. ZOLINZA [Suspect]
     Active Substance: VORINOSTAT
     Dosage: 300 MG ONCE DAILY WITH FOOD AS DIRECTED
     Route: 048
     Dates: start: 20140617, end: 20140625
  11. VOTRIENT [Suspect]
     Active Substance: PAZOPANIB HYDROCHLORIDE
     Dosage: 400 MG, QD
     Route: 048
     Dates: start: 20140714
  12. ZYRTEC [Concomitant]
     Active Substance: CETIRIZINE HYDROCHLORIDE
     Dosage: UNK

REACTIONS (27)
  - Headache [Unknown]
  - Hypertension [Recovered/Resolved]
  - Diarrhoea [Unknown]
  - Asthenia [Unknown]
  - Dehydration [Unknown]
  - Nausea [Unknown]
  - Nausea [Unknown]
  - Diarrhoea [Recovered/Resolved]
  - Weight decreased [Recovered/Resolved]
  - Vomiting [Unknown]
  - Asthenia [Unknown]
  - Headache [Recovered/Resolved]
  - Diarrhoea [Recovered/Resolved]
  - Vomiting [Recovered/Resolved]
  - Weight decreased [Recovered/Resolved]
  - Headache [Recovered/Resolved]
  - Vomiting [Unknown]
  - Dehydration [Unknown]
  - Hypertension [Recovered/Resolved]
  - Nausea [Recovered/Resolved]
  - Diarrhoea [Unknown]
  - Asthenia [Unknown]
  - Diarrhoea [Unknown]
  - Vomiting [Recovered/Resolved]
  - Dehydration [Recovered/Resolved]
  - Vomiting [Unknown]
  - Dehydration [Unknown]

NARRATIVE: CASE EVENT DATE: 201405
